FAERS Safety Report 10787024 (Version 2)
Quarter: 2015Q1

REPORT INFORMATION
  Report Type: Spontaneous
  Country: BR (occurrence: BR)
  Receive Date: 20150211
  Receipt Date: 20150304
  Transmission Date: 20150721
  Serious: Yes (Death)
  Sender: FDA-Public Use
  Company Number: BR-ACTELION-A-CH2015-112539

PATIENT
  Age: 47 Year
  Sex: Female

DRUGS (1)
  1. ZAVESCA [Suspect]
     Active Substance: MIGLUSTAT
     Indication: NIEMANN-PICK DISEASE
     Dosage: UNK, BID
     Route: 048

REACTIONS (3)
  - Disease progression [Fatal]
  - Pneumonia aspiration [Fatal]
  - Niemann-Pick disease [Fatal]
